FAERS Safety Report 24337972 (Version 1)
Quarter: 2024Q3

REPORT INFORMATION
  Report Type: Spontaneous
  Country: NL (occurrence: NL)
  Receive Date: 20240919
  Receipt Date: 20240919
  Transmission Date: 20241017
  Serious: Yes (Other)
  Sender: RANBAXY
  Company Number: NL-SUN PHARMACEUTICAL INDUSTRIES LTD-2024RR-468575

PATIENT
  Age: 58 Year
  Sex: Male
  Weight: 90 kg

DRUGS (1)
  1. TAMSULOSIN [Suspect]
     Active Substance: TAMSULOSIN
     Indication: Lower urinary tract symptoms
     Dosage: 1X PER DAY 1 PIECE
     Route: 065
     Dates: start: 20240403, end: 20240604

REACTIONS (4)
  - Syncope [Unknown]
  - Dizziness [Unknown]
  - Orthostatic hypotension [Unknown]
  - Condition aggravated [Unknown]
